FAERS Safety Report 18868570 (Version 1)
Quarter: 2021Q1

REPORT INFORMATION
  Report Type: Spontaneous
  Country: HR (occurrence: HR)
  Receive Date: 20210209
  Receipt Date: 20210209
  Transmission Date: 20210420
  Serious: Yes (Hospitalization)
  Sender: FDA-Public Use
  Company Number: NVSC2021HR026660

PATIENT
  Sex: Male

DRUGS (11)
  1. INSULIN [Concomitant]
     Active Substance: INSULIN NOS
     Indication: TYPE 1 DIABETES MELLITUS
     Dosage: UNK
     Route: 065
     Dates: start: 2018
  2. ENTRESTO [Suspect]
     Active Substance: SACUBITRIL\VALSARTAN
     Indication: CARDIAC FAILURE CONGESTIVE
     Dosage: 50 MG, BID (24/26MG)
     Route: 065
  3. CONCOR [Concomitant]
     Active Substance: BISOPROLOL FUMARATE
     Indication: PRODUCT USED FOR UNKNOWN INDICATION
     Dosage: 5 MG, QD
     Route: 065
  4. ELIQUIS [Concomitant]
     Active Substance: APIXABAN
     Indication: PRODUCT USED FOR UNKNOWN INDICATION
     Dosage: 5 MG, BID
     Route: 065
  5. CONCOR [Concomitant]
     Active Substance: BISOPROLOL FUMARATE
     Dosage: 2.5 UNK
     Route: 065
  6. LANTUS [Concomitant]
     Active Substance: INSULIN GLARGINE
     Indication: TYPE 2 DIABETES MELLITUS
     Dosage: 6 DF (22H)
     Route: 058
  7. NOVORAPID [Concomitant]
     Active Substance: INSULIN ASPART
     Indication: PRODUCT USED FOR UNKNOWN INDICATION
     Dosage: UNK, QD (4?8 INJECTIONS BEFORE A MEAL)
     Route: 065
  8. EDEMID FORTE 500 MG TABLETE [Suspect]
     Active Substance: FUROSEMIDE
     Indication: PRODUCT USED FOR UNKNOWN INDICATION
     Dosage: UNK UNK, BID (1/4, 1/4, 0)
     Route: 065
  9. LANTUS [Concomitant]
     Active Substance: INSULIN GLARGINE
     Dosage: 8 DF, QD (IN THE EVENING)
     Route: 058
  10. TULIP [Concomitant]
     Indication: PRODUCT USED FOR UNKNOWN INDICATION
     Dosage: 20 MG, QD
     Route: 065
  11. BERLITHION [Concomitant]
     Indication: DIABETIC NEUROPATHY
     Dosage: 600 MG, QD
     Route: 065

REACTIONS (13)
  - Dehydration [Unknown]
  - Dizziness [Unknown]
  - Dry skin [Unknown]
  - Orthostatic hypotension [Unknown]
  - Blood creatinine increased [Unknown]
  - Asthenia [Unknown]
  - Skin fissures [Unknown]
  - Blood urea increased [Unknown]
  - Fear [Unknown]
  - Glycosylated haemoglobin increased [Unknown]
  - N-terminal prohormone brain natriuretic peptide increased [Unknown]
  - Blood uric acid increased [Not Recovered/Not Resolved]
  - Blood glucose increased [Not Recovered/Not Resolved]

NARRATIVE: CASE EVENT DATE: 202006
